FAERS Safety Report 15440616 (Version 1)
Quarter: 2018Q4

REPORT INFORMATION
  Report Type: Spontaneous
  Country: DE (occurrence: DE)
  Receive Date: 20180928
  Receipt Date: 20180928
  Transmission Date: 20190204
  Serious: Yes (Life-Threatening, Hospitalization, Other)
  Sender: FDA-Public Use
  Company Number: DE-SA-2018SA268247

PATIENT
  Age: 31 Year
  Sex: Female
  Weight: 60 kg

DRUGS (7)
  1. QUETIAPINE FUMARATE. [Suspect]
     Active Substance: QUETIAPINE FUMARATE
     Indication: PRODUCT USED FOR UNKNOWN INDICATION
     Dosage: OVERDOSE: UNKNOWN DOSAGE (SINGLE DOSE)
     Route: 048
     Dates: start: 20100608, end: 20100608
  2. BALDRIAN DRAGEES (VALERIANA OFFICINALIS EXTRACT) [Suspect]
     Active Substance: VALERIAN
     Indication: PRODUCT USED FOR UNKNOWN INDICATION
     Dosage: OVERDOSE: UNKNOWN DOSAGE (SINGLE DOSE)
     Route: 048
     Dates: start: 20100608, end: 20100608
  3. PARACETAMOL [Suspect]
     Active Substance: ACETAMINOPHEN
     Indication: PRODUCT USED FOR UNKNOWN INDICATION
     Dosage: OVERDOSE: 15 G AT LEAST (SINGLE DOSE)
     Route: 048
     Dates: start: 20100608, end: 20100608
  4. DOXYLAMINE SUCCINATE. [Suspect]
     Active Substance: DOXYLAMINE SUCCINATE
     Indication: PRODUCT USED FOR UNKNOWN INDICATION
     Dosage: OVERDOSE: UNKNOWN DOSAGE (SINGLE DOSE)
     Route: 048
     Dates: start: 20100608, end: 20100608
  5. CITALOPRAM [Suspect]
     Active Substance: CITALOPRAM HYDROBROMIDE
     Dosage: OVERDOSE: UNKNOWN DOSAGE (SINGLE DOSE)
     Route: 065
  6. ALCOHOL. [Suspect]
     Active Substance: ALCOHOL
     Dosage: OVERDOSE: UNKNOWN AMOUNT (SINGLE INTAKE)
     Route: 048
     Dates: start: 20100608, end: 20100608
  7. HOGGAR BALANCE (PASSIFLORA INCARNATA EXTRACT) [Suspect]
     Active Substance: HERBALS\HOMEOPATHICS\PASSIFLORA INCARNATA FLOWER
     Indication: PRODUCT USED FOR UNKNOWN INDICATION
     Dosage: OVERDOSE: UNKNOWN DOSAGE (SINGLE DOSE)
     Route: 048
     Dates: start: 20100608, end: 20100608

REACTIONS (7)
  - Intentional overdose [Unknown]
  - Intentional overdose [Unknown]
  - Somnolence [Unknown]
  - Blood pressure systolic decreased [Unknown]
  - Suicide attempt [Unknown]
  - Hypotension [Unknown]
  - Blood creatine increased [Unknown]

NARRATIVE: CASE EVENT DATE: 20100608
